FAERS Safety Report 6076390-3 (Version None)
Quarter: 2009Q1

REPORT INFORMATION
  Report Type: 
  Country: None (occurrence: None)
  Receive Date: 20090210
  Receipt Date: 20090126
  Transmission Date: 20090719
  Serious: Yes (Life-Threatening, Hospitalization)
  Sender: FDA-Public Use
  Company Number: 2009S1001591

PATIENT
  Age: 30 Year
  Sex: Female

DRUGS (5)
  1. AMITRIPTYLINE HYDROCHLORIDE [Suspect]
     Dosage: ORAL
     Route: 048
  2. DULOXETINE (DULOXETINE) [Suspect]
     Dosage: ORAL
     Route: 048
  3. PIPAMPERONE (PIPAMPERONE) [Suspect]
     Dosage: ORAL
     Route: 048
  4. CITALOPRAM HYDROBROMIDE [Suspect]
     Dosage: ORAL
     Route: 048
  5. COCAINE (COCAINE) [Suspect]

REACTIONS (7)
  - AGITATION [None]
  - CONVULSION [None]
  - DELIRIUM [None]
  - HALLUCINATION [None]
  - LOSS OF CONSCIOUSNESS [None]
  - SOMNOLENCE [None]
  - SUICIDE ATTEMPT [None]
